FAERS Safety Report 13361254 (Version 1)
Quarter: 2017Q1

REPORT INFORMATION
  Report Type: Spontaneous
  Country: RU (occurrence: RU)
  Receive Date: 20170322
  Receipt Date: 20170322
  Transmission Date: 20170429
  Serious: Yes (Other)
  Sender: FDA-Public Use
  Company Number: RU-ASTRAZENECA-2017SE28970

PATIENT
  Age: 57 Year
  Sex: Female
  Weight: 72 kg

DRUGS (6)
  1. CARDIOMAGNYL [Concomitant]
     Active Substance: ASPIRIN\MAGNESIUM HYDROXIDE
  2. COD-LIVER OIL [Concomitant]
     Active Substance: FISH OIL
  3. BISOPROLOL [Concomitant]
     Active Substance: BISOPROLOL
  4. ROSUVASTATIN. [Concomitant]
     Active Substance: ROSUVASTATIN
  5. BRILINTA [Suspect]
     Active Substance: TICAGRELOR
     Indication: MYOCARDIAL INFARCTION
     Route: 048
     Dates: start: 20160629, end: 20161222
  6. HEPTRAL [Concomitant]
     Active Substance: ADEMETIONINE

REACTIONS (1)
  - Alanine aminotransferase increased [Recovered/Resolved]
